FAERS Safety Report 25124736 (Version 1)
Quarter: 2025Q1

REPORT INFORMATION
  Report Type: Spontaneous
  Country: FR (occurrence: FR)
  Receive Date: 20250326
  Receipt Date: 20250326
  Transmission Date: 20250409
  Serious: Yes (Hospitalization, Other)
  Sender: NOVARTIS
  Company Number: FR-JAZZ PHARMACEUTICALS-2025-FR-004633

PATIENT
  Age: 66 Year
  Sex: Female
  Weight: 50 kg

DRUGS (6)
  1. CYCLOSPORINE [Suspect]
     Active Substance: CYCLOSPORINE
     Indication: Renal transplant
     Dosage: 30 MG, Q12H,(30 MILLIGRAM, BID)
     Route: 048
  2. VALACYCLOVIR HYDROCHLORIDE [Suspect]
     Active Substance: VALACYCLOVIR HYDROCHLORIDE
     Indication: Prophylaxis
     Dosage: 500 MG, Q12H,(500 MILLIGRAM, BID)
     Route: 048
     Dates: start: 20250105
  3. VYXEOS [Suspect]
     Active Substance: CYTARABINE\DAUNORUBICIN
     Indication: Acute myeloid leukaemia
     Route: 042
     Dates: start: 20250108, end: 20250113
  4. VYXEOS [Suspect]
     Active Substance: CYTARABINE\DAUNORUBICIN
     Indication: Myelodysplastic syndrome
  5. LEVOTHYROXINE [Suspect]
     Active Substance: LEVOTHYROXINE
     Indication: Hypothyroidism
     Route: 048
  6. MEROPENEM [Suspect]
     Active Substance: MEROPENEM
     Indication: Thrombosis
     Route: 058
     Dates: start: 20250120

REACTIONS (4)
  - Dermatosis [Recovered/Resolved]
  - Generalised oedema [Recovering/Resolving]
  - Bone marrow failure [Recovering/Resolving]
  - Toxic skin eruption [Recovering/Resolving]
